FAERS Safety Report 7278839-7 (Version None)
Quarter: 2011Q1

REPORT INFORMATION
  Report Type: 
  Country: None (occurrence: None)
  Receive Date: 20110207
  Receipt Date: 20110131
  Transmission Date: 20110831
  Serious: Yes (Hospitalization)
  Sender: FDA-Public Use
  Company Number: US-BAYER-2011-010550

PATIENT
  Sex: Male
  Weight: 86 kg

DRUGS (2)
  1. ASPIRIN [Concomitant]
  2. ALEVE (CAPLET) [Suspect]
     Dosage: UNK
     Dates: start: 20110101

REACTIONS (6)
  - INFLUENZA LIKE ILLNESS [None]
  - BLOOD COUNT ABNORMAL [None]
  - MALAISE [None]
  - HAEMATOCHEZIA [None]
  - INTESTINAL HAEMORRHAGE [None]
  - FATIGUE [None]
